FAERS Safety Report 7198344-6 (Version None)
Quarter: 2010Q4

REPORT INFORMATION
  Report Type: 
  Country: None (occurrence: None)
  Receive Date: 20101213
  Receipt Date: 20101129
  Transmission Date: 20110411
  Serious: Yes (Other)
  Sender: FDA-Public Use
  Company Number: DSJ-2010-16656

PATIENT
  Age: 9 Decade
  Sex: Female

DRUGS (4)
  1. BENICAR HCT [Suspect]
     Indication: HYPERTENSION
     Dosage: 40/12.5 MG (1 IN 1 D), PER ORAL
     Route: 048
     Dates: start: 20090101, end: 20100901
  2. ISOSORBIDE (ISOSORBIDE) (ISOSORBIDE) [Concomitant]
  3. RANITIDINE (RANITIDINE) (RANITIDINE) [Concomitant]
  4. LERCANIDIPINE [Concomitant]

REACTIONS (4)
  - CEREBROVASCULAR ACCIDENT [None]
  - DIZZINESS [None]
  - DRUG INEFFECTIVE [None]
  - NEUROMYOPATHY [None]
